APPROVED DRUG PRODUCT: NORETHINDRONE ACETATE AND ETHINYL ESTRADIOL
Active Ingredient: ETHINYL ESTRADIOL; NORETHINDRONE ACETATE
Strength: 0.02MG;1MG
Dosage Form/Route: TABLET;ORAL-28
Application: A202772 | Product #001 | TE Code: AB
Applicant: XIROMED LLC
Approved: Nov 14, 2013 | RLD: No | RS: No | Type: RX